FAERS Safety Report 21948629 (Version 1)
Quarter: 2023Q1

REPORT INFORMATION
  Report Type: Spontaneous
  Country: AU (occurrence: None)
  Receive Date: 20230203
  Receipt Date: 20230203
  Transmission Date: 20230417
  Serious: Yes (Life-Threatening)
  Sender: FDA-Public Use
  Company Number: AU-Allegis Pharmaceuticals, LLC-APL202301-000004

PATIENT
  Age: 50 Year
  Sex: Female

DRUGS (8)
  1. NITROGLYCERIN [Suspect]
     Active Substance: NITROGLYCERIN
     Indication: Angiogram
     Dosage: GTN (SUBLINGUAL) X 2
     Route: 060
     Dates: start: 20220624, end: 20220624
  2. METOPROLOL [Suspect]
     Active Substance: METOPROLOL
     Indication: Angiogram
     Route: 048
     Dates: start: 20220623, end: 20220624
  3. METOPROLOL [Suspect]
     Active Substance: METOPROLOL
     Dosage: 50+25 MG ONSITE, ONCE
     Route: 048
     Dates: start: 20220624, end: 20220624
  4. OMNIPAQUE [Suspect]
     Active Substance: IOHEXOL
     Indication: Angiogram
     Route: 042
     Dates: start: 20220624, end: 20220624
  5. OMNIPAQUE [Suspect]
     Active Substance: IOHEXOL
     Indication: Chest discomfort
  6. ATORVASTATIN [Concomitant]
     Active Substance: ATORVASTATIN
     Indication: Product used for unknown indication
     Dosage: UNKNOWN
  7. LINAGLIPTIN [Concomitant]
     Active Substance: LINAGLIPTIN
     Indication: Product used for unknown indication
     Dosage: UNKNOWN
  8. METFORMIN HYDROCHLORIDE [Concomitant]
     Active Substance: METFORMIN HYDROCHLORIDE
     Indication: Type 2 diabetes mellitus
     Dosage: UNKNOWN

REACTIONS (3)
  - Chest discomfort [Recovered/Resolved]
  - Cough [Recovered/Resolved]
  - Tachycardia [Recovered/Resolved]

NARRATIVE: CASE EVENT DATE: 20220624
